FAERS Safety Report 21121009 (Version 1)
Quarter: 2022Q3

REPORT INFORMATION
  Report Type: Report from Study
  Country: US (occurrence: US)
  Receive Date: 20220722
  Receipt Date: 20220722
  Transmission Date: 20221026
  Serious: No
  Sender: FDA-Public Use
  Company Number: US-MIRM-000421

PATIENT
  Age: 3 Year
  Sex: Male

DRUGS (1)
  1. LIVMARLI [Suspect]
     Active Substance: MARALIXIBAT CHLORIDE

REACTIONS (3)
  - Faeces soft [None]
  - Product dose omission issue [None]
  - Abdominal pain [None]

NARRATIVE: CASE EVENT DATE: 20220412
